FAERS Safety Report 7558622-5 (Version None)
Quarter: 2011Q2

REPORT INFORMATION
  Report Type: 
  Country: None (occurrence: None)
  Receive Date: 20110621
  Receipt Date: 20110615
  Transmission Date: 20111010
  Serious: No
  Sender: FDA-Public Use
  Company Number: US-BIOGENIDEC-2010BI006853

PATIENT
  Age: 51 Year
  Sex: Female

DRUGS (1)
  1. TYSABRI [Suspect]
     Indication: MULTIPLE SCLEROSIS
     Route: 042
     Dates: start: 20090818

REACTIONS (5)
  - VISUAL IMPAIRMENT [None]
  - WEIGHT DECREASED [None]
  - FATIGUE [None]
  - EYE INFECTION [None]
  - HEADACHE [None]
